FAERS Safety Report 15547119 (Version 1)
Quarter: 2018Q4

REPORT INFORMATION
  Report Type: Spontaneous
  Country: US (occurrence: US)
  Receive Date: 20181024
  Receipt Date: 20181024
  Transmission Date: 20190205
  Serious: Yes (Hospitalization)
  Sender: FDA-Public Use
  Company Number: None

PATIENT
  Age: 45 Year
  Sex: Male
  Weight: 85.8 kg

DRUGS (3)
  1. MIDOSTAURIN [Suspect]
     Active Substance: MIDOSTAURIN
     Indication: ACUTE MYELOID LEUKAEMIA
     Route: 048
     Dates: start: 20180929, end: 20181011
  2. DAUNORUBICIN [Concomitant]
     Active Substance: DAUNORUBICIN
     Dates: start: 20180922, end: 20180924
  3. CYTARABINE. [Concomitant]
     Active Substance: CYTARABINE
     Dates: start: 20180922, end: 20180928

REACTIONS (5)
  - Rash erythematous [None]
  - Skin lesion [None]
  - Tenderness [None]
  - Pain of skin [None]
  - Burning sensation [None]

NARRATIVE: CASE EVENT DATE: 20181010
